FAERS Safety Report 24109178 (Version 1)
Quarter: 2024Q3

REPORT INFORMATION
  Report Type: Other
  Country: NL (occurrence: NL)
  Receive Date: 20240718
  Receipt Date: 20240718
  Transmission Date: 20241017
  Serious: Yes (Hospitalization, Other)
  Sender: EYWA PHARMA
  Company Number: NL-Eywa Pharma Inc.-2159233

PATIENT
  Age: 42 Year
  Sex: Male
  Weight: 65.9 kg

DRUGS (8)
  1. VALPROIC ACID [Suspect]
     Active Substance: VALPROIC ACID
     Indication: Schizoaffective disorder
     Route: 065
     Dates: start: 2021, end: 2022
  2. CLOZAPINE [Interacting]
     Active Substance: CLOZAPINE
     Route: 065
     Dates: start: 2005
  3. DROPERIDOL [Concomitant]
     Active Substance: DROPERIDOL
     Route: 065
  4. LORAZEPAM [Concomitant]
     Active Substance: LORAZEPAM
     Route: 065
  5. MEMANTINE [Concomitant]
     Active Substance: MEMANTINE
     Route: 065
  6. GLYCOPYRRONIUM [Concomitant]
     Active Substance: GLYCOPYRRONIUM
     Route: 065
  7. HALOPERIDOL [Concomitant]
     Active Substance: HALOPERIDOL
  8. FLUVOXAMINE MALEATE [Concomitant]
     Active Substance: FLUVOXAMINE MALEATE
     Route: 065

REACTIONS (5)
  - Ileus paralytic [Recovered/Resolved]
  - Drug ineffective for unapproved indication [Unknown]
  - Drug interaction [Unknown]
  - Rebound effect [Recovered/Resolved]
  - Constipation [Recovered/Resolved]
